FAERS Safety Report 4515210-2 (Version None)
Quarter: 2004Q4

REPORT INFORMATION
  Report Type: 
  Country: None (occurrence: None)
  Receive Date: 20041201
  Receipt Date: 20041117
  Transmission Date: 20050328
  Serious: Yes (Congenital Anomaly)
  Sender: FDA-Public Use
  Company Number: E2004-03702

PATIENT
  Sex: Female

DRUGS (7)
  1. AMOXICILLIN [Suspect]
     Dates: start: 20030811, end: 20030818
  2. RANITIDINE [Suspect]
     Dates: start: 20030627
  3. IRON [Suspect]
     Dates: start: 20030924, end: 20031201
  4. PERMETHRIN [Suspect]
     Dates: start: 20030916
  5. ALBUTEROL [Suspect]
  6. BECLOMETHASONE DIPROPIONATE [Suspect]
  7. INFLUENZA VACCINE [Concomitant]
     Dates: start: 20031016

REACTIONS (2)
  - DRUG EXPOSURE DURING PREGNANCY [None]
  - TALIPES [None]
